FAERS Safety Report 23936752 (Version 1)
Quarter: 2024Q2

REPORT INFORMATION
  Report Type: Spontaneous
  Country: US (occurrence: None)
  Receive Date: 20240603
  Receipt Date: 20240603
  Transmission Date: 20240716
  Serious: Yes (Other)
  Sender: FDA-Public Use
  Company Number: None

PATIENT
  Age: 31 Year
  Sex: Female
  Weight: 50.22 kg

DRUGS (8)
  1. KYLEENA [Suspect]
     Active Substance: LEVONORGESTREL
     Indication: Hormone replacement therapy
     Dosage: OTHER QUANTITY : 1 IUD?OTHER FREQUENCY : CONTINUOUS RELEASE?OTHER ROUTE : INJECTION INTO VAGINAL ARE
     Route: 050
     Dates: start: 20240517
  2. ADDERALL [Concomitant]
     Active Substance: AMPHETAMINE ASPARTATE\AMPHETAMINE SULFATE\DEXTROAMPHETAMINE SACCHARATE\DEXTROAMPHETAMINE SULFATE
  3. LINZESS [Concomitant]
     Active Substance: LINACLOTIDE
  4. BUSPIRONE [Concomitant]
     Active Substance: BUSPIRONE HYDROCHLORIDE
  5. MELATONIN [Concomitant]
     Active Substance: MELATONIN
  6. MAGNESIUM CITRATE [Concomitant]
     Active Substance: MAGNESIUM CITRATE
  7. PRO AND PREBIOTIC [Concomitant]
  8. MAGNESIUM BISGLYCINATE [Concomitant]

REACTIONS (14)
  - Weight increased [None]
  - Asthenia [None]
  - Depression [None]
  - Constipation [None]
  - Dyspepsia [None]
  - Nausea [None]
  - Abdominal pain [None]
  - Flatulence [None]
  - Abdominal distension [None]
  - Seborrhoea [None]
  - Acne [None]
  - Vaginal discharge [None]
  - Breast pain [None]
  - Blood pressure increased [None]

NARRATIVE: CASE EVENT DATE: 20240527
